FAERS Safety Report 16484692 (Version 1)
Quarter: 2019Q2

REPORT INFORMATION
  Report Type: Report from Study
  Country: CA (occurrence: CA)
  Receive Date: 20190627
  Receipt Date: 20190627
  Transmission Date: 20190711
  Serious: Yes (Other)
  Sender: FDA-Public Use
  Company Number: CA-JNJFOC-20190521374

PATIENT
  Age: 67 Year
  Sex: Female

DRUGS (1)
  1. REMICADE [Suspect]
     Active Substance: INFLIXIMAB
     Indication: CROHN^S DISEASE
     Route: 042

REACTIONS (11)
  - Musculoskeletal stiffness [Recovered/Resolved]
  - Contusion [Unknown]
  - Product use issue [Unknown]
  - Abdominal pain [Recovering/Resolving]
  - Arthralgia [Recovering/Resolving]
  - Haemorrhoids [Unknown]
  - Headache [Unknown]
  - Off label use [Unknown]
  - Neuroendocrine tumour [Unknown]
  - Pulmonary mass [Unknown]
  - Liver disorder [Unknown]

NARRATIVE: CASE EVENT DATE: 201810
